FAERS Safety Report 12493216 (Version 4)
Quarter: 2017Q2

REPORT INFORMATION
  Report Type: Spontaneous
  Country: US (occurrence: US)
  Receive Date: 20160623
  Receipt Date: 20170413
  Transmission Date: 20170830
  Serious: Yes (Other)
  Sender: FDA-Public Use
  Company Number: US-BAYER-2016-120974

PATIENT
  Age: 22 Year
  Sex: Female
  Weight: 57.6 kg

DRUGS (1)
  1. SKYLA [Suspect]
     Active Substance: LEVONORGESTREL
     Indication: CONTRACEPTION
     Dosage: 14 MCG/24HR, CONT
     Route: 015
     Dates: start: 20150902, end: 20160506

REACTIONS (3)
  - Pregnancy with contraceptive device [None]
  - Premature delivery [None]
  - Medical device monitoring error [None]
